FAERS Safety Report 9660046 (Version 1)
Quarter: 2013Q4

REPORT INFORMATION
  Report Type: Spontaneous
  Country: US (occurrence: US)
  Receive Date: 20131031
  Receipt Date: 20131031
  Transmission Date: 20140711
  Serious: No
  Sender: FDA-Public Use
  Company Number: US-ABBVIE-13P-163-1151696-00

PATIENT
  Sex: Male

DRUGS (4)
  1. BIAXIN [Suspect]
     Indication: LYME DISEASE
     Dates: start: 201301, end: 201301
  2. BIAXIN [Suspect]
     Dates: start: 201303, end: 201303
  3. BIAXIN [Suspect]
     Dates: start: 201303, end: 201303
  4. METFORMIN [Concomitant]
     Indication: DIABETES MELLITUS

REACTIONS (1)
  - Hypoglycaemia [Not Recovered/Not Resolved]
